FAERS Safety Report 5402701-5 (Version None)
Quarter: 2007Q3

REPORT INFORMATION
  Report Type: 
  Country: None (occurrence: None)
  Receive Date: 20070801
  Receipt Date: 20070727
  Transmission Date: 20080115
  Serious: Yes (Other)
  Sender: FDA-Public Use
  Company Number: B0480872A

PATIENT
  Age: 88 Year
  Sex: Female

DRUGS (8)
  1. PAXIL [Suspect]
     Indication: DRUG USE FOR UNKNOWN INDICATION
     Dosage: 20MG PER DAY
     Route: 048
     Dates: start: 20070706, end: 20070719
  2. ITRACONAZOLE [Concomitant]
     Route: 048
  3. MYSLEE [Concomitant]
     Route: 048
  4. SELBEX [Concomitant]
     Route: 048
  5. GASTROM [Concomitant]
     Route: 048
  6. PLAVIX [Concomitant]
     Route: 048
  7. ASPIRIN [Concomitant]
     Route: 048
  8. CIBENOL [Concomitant]
     Route: 065

REACTIONS (2)
  - AMIMIA [None]
  - APATHY [None]
